FAERS Safety Report 9881186 (Version 1)
Quarter: 2014Q1

REPORT INFORMATION
  Report Type: Spontaneous
  Country: CA (occurrence: CA)
  Receive Date: 20140207
  Receipt Date: 20140207
  Transmission Date: 20141002
  Serious: Yes (Life-Threatening)
  Sender: FDA-Public Use
  Company Number: CA-ASTRAZENECA-2014SE07619

PATIENT
  Age: 44 Year
  Sex: Male
  Weight: 106.6 kg

DRUGS (5)
  1. CRESTOR [Suspect]
     Route: 048
  2. GLUCOSAMINE [Concomitant]
  3. OMEGA 3-6-9 [Concomitant]
  4. VITAMIN C [Concomitant]
  5. VITAMIN D [Concomitant]

REACTIONS (1)
  - Cardiac failure congestive [Recovered/Resolved]
